FAERS Safety Report 23190505 (Version 3)
Quarter: 2023Q4

REPORT INFORMATION
  Report Type: Spontaneous
  Country: GB (occurrence: GB)
  Receive Date: 20231116
  Receipt Date: 20231201
  Transmission Date: 20240110
  Serious: Yes (Death, Hospitalization, Other)
  Sender: FDA-Public Use
  Company Number: None

PATIENT
  Age: 59 Year
  Sex: Male
  Weight: 62 kg

DRUGS (166)
  1. ARIPIPRAZOLE [Suspect]
     Active Substance: ARIPIPRAZOLE
     Indication: Schizophrenia
     Dosage: 5 MILLIGRAM (OFF LABEL USE)
     Route: 065
  2. ARIPIPRAZOLE [Suspect]
     Active Substance: ARIPIPRAZOLE
     Dosage: 5 MILLIGRAM (OFF LABEL USE)
     Route: 065
  3. ARIPIPRAZOLE [Suspect]
     Active Substance: ARIPIPRAZOLE
     Dosage: 5 MILLIGRAM (OFF LABEL USE)
     Route: 065
  4. ARIPIPRAZOLE [Suspect]
     Active Substance: ARIPIPRAZOLE
     Dosage: 5 MILLIGRAM (OFF LABEL USE)
     Route: 065
  5. ARIPIPRAZOLE [Suspect]
     Active Substance: ARIPIPRAZOLE
     Dosage: 5 MILLIGRAM (OFF LABEL USE)
     Route: 065
  6. OLANZAPINE [Suspect]
     Active Substance: OLANZAPINE
     Indication: Schizophrenia
     Dosage: 1 MILLIGRAM
     Route: 050
  7. OLANZAPINE [Suspect]
     Active Substance: OLANZAPINE
     Dosage: UNK
     Route: 065
  8. OLANZAPINE [Suspect]
     Active Substance: OLANZAPINE
     Dosage: 10 MILLIGRAM
     Route: 048
  9. OLANZAPINE [Suspect]
     Active Substance: OLANZAPINE
     Dosage: 10 MILLIGRAM
     Route: 048
  10. OLANZAPINE [Suspect]
     Active Substance: OLANZAPINE
     Dosage: 10 MILLIGRAM
     Route: 048
  11. OLANZAPINE [Suspect]
     Active Substance: OLANZAPINE
     Dosage: 10 MILLIGRAM
     Route: 048
  12. OLANZAPINE [Suspect]
     Active Substance: OLANZAPINE
     Dosage: 10 MILLIGRAM
     Route: 048
  13. OLANZAPINE [Suspect]
     Active Substance: OLANZAPINE
     Dosage: 15 MILLIGRAM
     Route: 065
     Dates: start: 20040217
  14. OLANZAPINE [Suspect]
     Active Substance: OLANZAPINE
     Dosage: 15 MILLIGRAM
     Route: 048
     Dates: start: 20060704
  15. OLANZAPINE [Suspect]
     Active Substance: OLANZAPINE
     Dosage: 2.5 MILLIGRAM, QD
     Route: 065
     Dates: start: 20080823
  16. OLANZAPINE [Suspect]
     Active Substance: OLANZAPINE
     Dosage: 2.5 MILLIGRAM
     Route: 065
  17. CHLORPROMAZINE [Suspect]
     Active Substance: CHLORPROMAZINE
     Indication: Schizophrenia
     Dosage: 75 MILLIGRAM
     Route: 065
  18. CHLORPROMAZINE [Suspect]
     Active Substance: CHLORPROMAZINE
     Dosage: 75 MILLIGRAM
     Route: 065
  19. CHLORPROMAZINE [Suspect]
     Active Substance: CHLORPROMAZINE
     Dosage: 75 MILLIGRAM
     Route: 065
  20. CHLORPROMAZINE [Suspect]
     Active Substance: CHLORPROMAZINE
     Dosage: 75 MILLIGRAM
     Route: 065
  21. ZUCLOPENTHIXOL [Suspect]
     Active Substance: ZUCLOPENTHIXOL
     Indication: Schizophrenia
     Dosage: 300 MILLIGRAM, ONCE WEEKLY (OFF LABEL USE)
     Route: 050
     Dates: start: 20091009
  22. ZUCLOPENTHIXOL [Suspect]
     Active Substance: ZUCLOPENTHIXOL
     Dosage: 400 MILLIGRAM, ONCE WEEKLY (OFF LABEL USE)
     Route: 065
     Dates: start: 20030204, end: 20040217
  23. ZUCLOPENTHIXOL [Suspect]
     Active Substance: ZUCLOPENTHIXOL
     Dosage: 800 MILLIGRAM, ONCE WEEKLY (OFF LABEL USE)
     Route: 065
     Dates: start: 20041018, end: 20041018
  24. ZUCLOPENTHIXOL [Suspect]
     Active Substance: ZUCLOPENTHIXOL
     Dosage: 400 MILLIGRAM
     Route: 065
     Dates: start: 20041018, end: 20041018
  25. ZUCLOPENTHIXOL [Suspect]
     Active Substance: ZUCLOPENTHIXOL
     Dosage: 400 MILLIGRAM, ONCE WEEKLY (OFF LABEL USE)
     Route: 065
     Dates: start: 20040217, end: 20040601
  26. ZUCLOPENTHIXOL [Suspect]
     Active Substance: ZUCLOPENTHIXOL
     Dosage: 400 MILLIGRAM, ONCE WEEKLY (OFF LABEL USE)
     Route: 065
     Dates: start: 20030204, end: 20040217
  27. ZUCLOPENTHIXOL [Suspect]
     Active Substance: ZUCLOPENTHIXOL
     Dosage: 300 MILLIGRAM, ONCE WEEKLY (OFF LABEL USE)
     Route: 050
     Dates: start: 20091018
  28. ZUCLOPENTHIXOL [Suspect]
     Active Substance: ZUCLOPENTHIXOL
     Dosage: 300 MILLIGRAM, ONCE WEEKLY
     Route: 050
     Dates: start: 20091009
  29. ZUCLOPENTHIXOL [Suspect]
     Active Substance: ZUCLOPENTHIXOL
     Dosage: 400 MILLIGRAM, ONCE WEEKLY
     Route: 065
     Dates: start: 20040601, end: 20041018
  30. ZUCLOPENTHIXOL [Suspect]
     Active Substance: ZUCLOPENTHIXOL
     Dosage: 800 MILLIGRAM, ONCE WEEKLY (OFF LABEL USE)
     Route: 030
     Dates: start: 20040601, end: 20041018
  31. ZUCLOPENTHIXOL [Suspect]
     Active Substance: ZUCLOPENTHIXOL
     Dosage: 400 MILLIGRAM, ONCE WEEKLY (OFF LABEL USE)
     Route: 065
  32. ZUCLOPENTHIXOL [Suspect]
     Active Substance: ZUCLOPENTHIXOL
     Dosage: 400 MILLIGRAM (CYCLICAL, OFF LABEL USE)
     Route: 030
  33. ZUCLOPENTHIXOL [Suspect]
     Active Substance: ZUCLOPENTHIXOL
     Dosage: 400 MILLIGRAM (OFF LABEL USE)
     Route: 030
     Dates: end: 20041018
  34. ZUCLOPENTHIXOL [Suspect]
     Active Substance: ZUCLOPENTHIXOL
     Dosage: 400 MILLIGRAM (OFF LABEL USE)
     Route: 030
     Dates: end: 20041018
  35. ZUCLOPENTHIXOL [Suspect]
     Active Substance: ZUCLOPENTHIXOL
     Dosage: 800 MILLIGRAM, ONCE WEEKLY (OFF LABEL USE)
     Route: 030
     Dates: end: 20040217
  36. ZUCLOPENTHIXOL [Suspect]
     Active Substance: ZUCLOPENTHIXOL
     Dosage: 400 MILLIGRAM (Q2WK, TWICE WEEKLY, OFF LABEL USE)
     Route: 050
     Dates: start: 20091018
  37. ZUCLOPENTHIXOL [Suspect]
     Active Substance: ZUCLOPENTHIXOL
     Dosage: UNK
     Route: 065
  38. ZUCLOPENTHIXOL [Suspect]
     Active Substance: ZUCLOPENTHIXOL
     Dosage: 400 MILLIGRAM (OTHER (BIWEEKLY)
     Route: 030
     Dates: start: 20041018, end: 20041018
  39. ZUCLOPENTHIXOL [Suspect]
     Active Substance: ZUCLOPENTHIXOL
     Dosage: 400 MILLIGRAM ONCE WEEKLY
     Route: 065
     Dates: end: 20040601
  40. CLOZARIL [Suspect]
     Active Substance: CLOZAPINE
     Indication: Schizophrenia
     Dosage: 6000 MILLIGRAM (OFF LABEL USE)
     Route: 050
     Dates: start: 20201209, end: 20201223
  41. CLOZARIL [Suspect]
     Active Substance: CLOZAPINE
     Dosage: 100 MILLIGRAM, QD (PER DAY, OFF LABEL USE)
     Route: 048
     Dates: start: 20191223, end: 20191223
  42. CLOZARIL [Suspect]
     Active Substance: CLOZAPINE
     Dosage: 400 MILLIGRAM, QD (PER DAY, OFF LABEL USE)
     Route: 050
  43. CLOZARIL [Suspect]
     Active Substance: CLOZAPINE
     Dosage: 50 MILLIGRAM, QD (OFF LABEL USE)
     Route: 048
     Dates: start: 20190809, end: 20190823
  44. CLOZARIL [Suspect]
     Active Substance: CLOZAPINE
     Dosage: 245 MILLIGRAM, QD (OFF LABEL USE)
     Route: 050
     Dates: start: 20190823, end: 20190823
  45. CLOZARIL [Suspect]
     Active Substance: CLOZAPINE
     Dosage: 6000 MILLIGRAM (OFF LABEL USE)
     Route: 048
     Dates: start: 20200207
  46. CLOZARIL [Suspect]
     Active Substance: CLOZAPINE
     Dosage: 300 MILLIGRAM, QD (OFF LABEL USE)
     Route: 065
     Dates: start: 20100823
  47. CLOZARIL [Suspect]
     Active Substance: CLOZAPINE
     Dosage: 245 MILLIGRAM, QD (OFF LABEL USE)
     Route: 048
     Dates: start: 20191207
  48. CLOZARIL [Suspect]
     Active Substance: CLOZAPINE
     Dosage: 400 MILLIGRAM, QD (OFF LABEL USE)
     Route: 050
     Dates: start: 20191209, end: 20191223
  49. CLOZARIL [Suspect]
     Active Substance: CLOZAPINE
     Dosage: 600 MILLIGRAM, QD (OFF LABEL USE)
     Route: 048
     Dates: start: 20191207, end: 20191223
  50. CLOZARIL [Suspect]
     Active Substance: CLOZAPINE
     Dosage: UNK, QD (1 DOSE PER DAY)
     Route: 048
     Dates: start: 20190823, end: 20190823
  51. CLOZARIL [Suspect]
     Active Substance: CLOZAPINE
     Dosage: UNK
     Route: 050
     Dates: start: 20191223, end: 20191223
  52. CLOZARIL [Suspect]
     Active Substance: CLOZAPINE
     Dosage: 100 MILLIGRAM, QD (OFF LABEL USE)
     Route: 048
  53. CLOZARIL [Suspect]
     Active Substance: CLOZAPINE
     Dosage: 245 MILLIGRAM, QD (OFF LABEL USE)
     Route: 048
     Dates: start: 20191209, end: 20191223
  54. CLOZARIL [Suspect]
     Active Substance: CLOZAPINE
     Dosage: 6000 MILLIGRAM (OFF LABEL USE)
     Route: 048
     Dates: start: 20201223, end: 20201223
  55. CLOZARIL [Suspect]
     Active Substance: CLOZAPINE
     Dosage: UNK (OFF LABEL USE)
     Route: 048
     Dates: start: 20191209, end: 20191223
  56. CLOZARIL [Suspect]
     Active Substance: CLOZAPINE
     Dosage: 400 MILLIGRAM, QD (OFF LABEL USE)
     Route: 050
     Dates: start: 20191223, end: 20191223
  57. CLOZARIL [Suspect]
     Active Substance: CLOZAPINE
     Dosage: 600 MILLIGRAM, QD (OFF LABEL USE)
     Route: 048
  58. CLOZARIL [Suspect]
     Active Substance: CLOZAPINE
     Dosage: 6000 MILLIGRAM (OFF LABEL USE)
     Route: 048
     Dates: start: 20100823
  59. CLOZARIL [Suspect]
     Active Substance: CLOZAPINE
     Dosage: 50 MILLIGRAM, QD (OFF LABEL USE)
     Route: 048
     Dates: start: 20191209, end: 20191223
  60. CLOZARIL [Suspect]
     Active Substance: CLOZAPINE
     Dosage: 6000 MILLIGRAM, QD (OFF LABEL USE)
     Route: 048
     Dates: start: 20201207
  61. CLOZARIL [Suspect]
     Active Substance: CLOZAPINE
     Dosage: 6000 MILLIGRAM, QD (OFF LABEL USE)
     Route: 048
     Dates: start: 20201207
  62. CLOZARIL [Suspect]
     Active Substance: CLOZAPINE
     Dosage: 275 MILLIGRAM, QD (OFF LABEL USE)
     Route: 048
     Dates: start: 20200521, end: 20200521
  63. CLOZARIL [Suspect]
     Active Substance: CLOZAPINE
     Dosage: 245 MILLIGRAM, QD (OFF LABEL USE)
     Route: 050
     Dates: start: 20200521
  64. CLOZARIL [Suspect]
     Active Substance: CLOZAPINE
     Dosage: 6000 MILLIGRAM, (OFF LABEL USE)
     Route: 050
     Dates: start: 20200521
  65. CLOZARIL [Suspect]
     Active Substance: CLOZAPINE
     Dosage: 400 MILLIGRAM, BID (OFF LABEL USE)
     Route: 048
     Dates: start: 20200207
  66. CLOZARIL [Suspect]
     Active Substance: CLOZAPINE
     Dosage: 245 MILLIGRAM
     Route: 048
     Dates: start: 20191207
  67. CLOZARIL [Suspect]
     Active Substance: CLOZAPINE
     Dosage: 245 MILLIGRAM, QD
     Route: 048
     Dates: start: 20100823
  68. CLOZARIL [Suspect]
     Active Substance: CLOZAPINE
     Dosage: 6000 MILLIGRAM, (OFF LABEL USE)
     Route: 048
     Dates: start: 20191223, end: 20191223
  69. CLOZARIL [Suspect]
     Active Substance: CLOZAPINE
     Dosage: 275 MILLIGRAM, QD (OFF LABEL USE)
     Route: 048
     Dates: end: 20200521
  70. CLOZARIL [Suspect]
     Active Substance: CLOZAPINE
     Dosage: 600 MILLIGRAM, QD (OFF LABEL USE)
     Route: 048
     Dates: start: 20200521
  71. CLOZARIL [Suspect]
     Active Substance: CLOZAPINE
     Dosage: 1 DOSAGE FORM, QD (OFF LABEL USE)
     Route: 050
  72. CLOZARIL [Suspect]
     Active Substance: CLOZAPINE
     Dosage: 50 MILLIGRAM, QD (OFF LABEL USE)
     Route: 048
     Dates: start: 20200521
  73. CLOZARIL [Suspect]
     Active Substance: CLOZAPINE
     Dosage: UNK (TABLET)
     Route: 050
     Dates: start: 20200521
  74. CLOZARIL [Suspect]
     Active Substance: CLOZAPINE
     Dosage: 800 MILLIGRAM, QD (TABLET)
     Route: 050
     Dates: start: 20201207
  75. CLOZARIL [Suspect]
     Active Substance: CLOZAPINE
     Dosage: 300 MILLIGRAM, QD
     Route: 065
  76. DOCETAXEL [Suspect]
     Active Substance: DOCETAXEL\DOCETAXEL ANHYDROUS
     Indication: Breast cancer metastatic
     Dosage: 220 MILLIGRAM
     Route: 065
     Dates: start: 20151222
  77. DOCETAXEL [Suspect]
     Active Substance: DOCETAXEL\DOCETAXEL ANHYDROUS
     Dosage: 220 MILLIGRAM
     Route: 065
     Dates: start: 20150930, end: 20151021
  78. DOCETAXEL [Suspect]
     Active Substance: DOCETAXEL\DOCETAXEL ANHYDROUS
     Dosage: UNK
     Route: 065
     Dates: start: 20151222
  79. DOCETAXEL [Suspect]
     Active Substance: DOCETAXEL\DOCETAXEL ANHYDROUS
     Dosage: 110 MILLIGRAM (EVERY 3 WEEKS)
     Route: 050
     Dates: start: 20150930, end: 20151021
  80. DOCETAXEL [Suspect]
     Active Substance: DOCETAXEL\DOCETAXEL ANHYDROUS
     Dosage: 220 MILLIGRAM (INJECTION)
     Route: 065
  81. HALDOL [Suspect]
     Active Substance: HALOPERIDOL
     Indication: Schizophrenia
     Dosage: 20 MILLIGRAM, QD (OFF LABEL USE)
     Route: 050
  82. HALDOL [Suspect]
     Active Substance: HALOPERIDOL
     Dosage: 20 MILLIGRAM, BID (OFF LABEL USE)
     Route: 050
  83. HALDOL [Suspect]
     Active Substance: HALOPERIDOL
     Dosage: 5 MILLIGRAM, QD
     Route: 050
  84. HALDOL [Suspect]
     Active Substance: HALOPERIDOL
     Dosage: 5 MILLIGRAM, BID (OFF LABEL USE)
     Route: 050
  85. HALDOL [Suspect]
     Active Substance: HALOPERIDOL
     Dosage: 10 MILLIGRAM, QD (OFF LABEL USE)
     Route: 050
  86. HALDOL [Suspect]
     Active Substance: HALOPERIDOL
     Dosage: 20 MILLIGRAM (OFF LABEL USE)
     Route: 050
  87. HALDOL [Suspect]
     Active Substance: HALOPERIDOL
     Dosage: 40 MILLIGRAM, QD (20 MG, BID)
     Route: 050
  88. LORAZEPAM [Suspect]
     Active Substance: LORAZEPAM
     Indication: Schizophrenia
     Dosage: 1 MILLIGRAM
     Route: 050
  89. LORAZEPAM [Suspect]
     Active Substance: LORAZEPAM
     Dosage: 1 MILLIGRAM
     Route: 050
  90. LORAZEPAM [Suspect]
     Active Substance: LORAZEPAM
     Dosage: 1 MILLIGRAM
     Route: 050
  91. LORAZEPAM [Suspect]
     Active Substance: LORAZEPAM
     Dosage: 1 MILLIGRAM
     Route: 050
  92. LORAZEPAM [Suspect]
     Active Substance: LORAZEPAM
     Dosage: 1 MILLIGRAM
     Route: 050
  93. LORAZEPAM [Suspect]
     Active Substance: LORAZEPAM
     Dosage: 1 MILLIGRAM
     Route: 050
  94. LORAZEPAM [Suspect]
     Active Substance: LORAZEPAM
     Dosage: 1 MILLIGRAM
     Route: 050
  95. LORAZEPAM [Suspect]
     Active Substance: LORAZEPAM
     Dosage: 1 MILLIGRAM
     Route: 050
  96. LORAZEPAM [Suspect]
     Active Substance: LORAZEPAM
     Dosage: 1 MILLIGRAM
     Route: 050
  97. LORAZEPAM [Suspect]
     Active Substance: LORAZEPAM
     Dosage: 1 MILLIGRAM
     Route: 050
  98. LORAZEPAM [Suspect]
     Active Substance: LORAZEPAM
     Dosage: 1 MILLIGRAM
     Route: 050
  99. LORAZEPAM [Suspect]
     Active Substance: LORAZEPAM
     Dosage: UNK
     Route: 050
  100. LITHIUM [Suspect]
     Active Substance: LITHIUM
     Indication: Product used for unknown indication
     Dosage: 2 GRAM
     Route: 065
  101. LITHIUM [Suspect]
     Active Substance: LITHIUM
     Dosage: 6 MILLIGRAM, QD
     Route: 065
  102. LITHIUM [Suspect]
     Active Substance: LITHIUM
     Dosage: 1 GRAM
     Route: 050
  103. LITHIUM [Suspect]
     Active Substance: LITHIUM
     Dosage: 1 GRAM
     Route: 065
  104. PACLITAXEL [Suspect]
     Active Substance: PACLITAXEL
     Indication: Breast cancer metastatic
     Dosage: 120 MILLIGRAM, ONCE WEEKLY (INJECTION)
     Route: 065
     Dates: start: 20151111, end: 20151222
  105. PACLITAXEL [Suspect]
     Active Substance: PACLITAXEL
     Dosage: 120 MILLIGRAM, ONCE WEEKLY
     Route: 050
     Dates: start: 20151223, end: 20151223
  106. PACLITAXEL [Suspect]
     Active Substance: PACLITAXEL
     Dosage: 150 MILLIGRAM, ONCE WEEKLY (QW (CUMULATIVE DOSE: 428.57 MG)
     Route: 042
     Dates: start: 20151111, end: 20151222
  107. PERTUZUMAB [Suspect]
     Active Substance: PERTUZUMAB
     Indication: Breast cancer metastatic
     Dosage: 2 INTERNATIONAL UNIT, ONCE WEEKLY (OFF LABEL USE)
     Route: 042
  108. PERTUZUMAB [Suspect]
     Active Substance: PERTUZUMAB
     Dosage: UNK, ONCE WEEKLY (1 DOSE, OFF LABEL USE)
     Route: 042
  109. PERTUZUMAB [Suspect]
     Active Substance: PERTUZUMAB
     Dosage: 840 MILLIGRAM (3 TIMES A WEEK, OFF LABEL USE)
     Route: 042
     Dates: start: 20150930
  110. PERTUZUMAB [Suspect]
     Active Substance: PERTUZUMAB
     Dosage: 840 MILLIGRAM (3 TIMES A WEEK, OFF LABEL USE)
     Route: 042
     Dates: start: 20151021
  111. PERTUZUMAB [Suspect]
     Active Substance: PERTUZUMAB
     Dosage: 420 MILLIGRAM (3 TIMES A WEEK, OFF LABEL USE)
     Route: 042
     Dates: start: 20151021
  112. RISPERIDONE [Suspect]
     Active Substance: RISPERIDONE
     Indication: Schizophrenia
     Dosage: 1 MILLIGRAM (OFF LABEL USE)
     Route: 048
  113. RISPERIDONE [Suspect]
     Active Substance: RISPERIDONE
     Dosage: 1 GRAM, QD (OFF LABEL USE)
     Route: 048
  114. RISPERIDONE [Suspect]
     Active Substance: RISPERIDONE
     Dosage: 3 MILLIGRAM, QD (OFF LABEL USE)
     Route: 048
  115. RISPERIDONE [Suspect]
     Active Substance: RISPERIDONE
     Dosage: 4 MILLIGRAM, QD (OFF LABEL USE)
     Route: 048
  116. RISPERIDONE [Suspect]
     Active Substance: RISPERIDONE
     Dosage: 6 MILLIGRAM, QD (OFF LABEL USE)
     Route: 048
  117. RISPERIDONE [Suspect]
     Active Substance: RISPERIDONE
     Dosage: 2 MILLIGRAM, QD (OFF LABEL USE) (RISPERDAL)
     Route: 048
  118. RISPERIDONE [Suspect]
     Active Substance: RISPERIDONE
     Dosage: 3 MILLIGRAM, BID (Q12H, OFF LABEL USE) (RISPERDAL)
     Route: 048
  119. RISPERIDONE [Suspect]
     Active Substance: RISPERIDONE
     Dosage: 4 MILLIGRAM, QD (OFF LABEL USE) (RISPERDAL)
     Route: 065
  120. RISPERIDONE [Suspect]
     Active Substance: RISPERIDONE
     Dosage: 1 GRAM, QD (OFF LABEL USE) (RISPERDAL)
     Route: 048
  121. RISPERIDONE [Suspect]
     Active Substance: RISPERIDONE
     Dosage: 6 MILLIGRAM, BID (OFF LABEL USE) (RISPERDAL)
     Route: 048
  122. RISPERIDONE [Suspect]
     Active Substance: RISPERIDONE
     Dosage: 6 MILLIGRAM, QD (OFF LABEL USE) (RISPERDAL)
     Route: 048
  123. RISPERIDONE [Suspect]
     Active Substance: RISPERIDONE
     Dosage: 4 MILLIGRAM, BID (OFF LABEL USE) (RISPERDAL)
     Route: 048
  124. RISPERIDONE [Suspect]
     Active Substance: RISPERIDONE
     Dosage: 2 MILLIGRAM, BID (OFF LABEL USE) (RISPERDAL)
     Route: 048
  125. RISPERIDONE [Suspect]
     Active Substance: RISPERIDONE
     Dosage: 1 MILLIGRAM, QD (OFF LABEL USE) (RISPERDAL)
     Route: 048
  126. TRASTUZUMAB [Suspect]
     Active Substance: TRASTUZUMAB
     Indication: Breast cancer metastatic
     Dosage: 1827 MILLIGRAM, ONCE WEEKLY
     Route: 065
     Dates: start: 20150930
  127. TRASTUZUMAB [Suspect]
     Active Substance: TRASTUZUMAB
     Dosage: 1218 MILLIGRAM, ONCE WEEKLY
     Route: 065
     Dates: start: 20150930
  128. TRASTUZUMAB [Suspect]
     Active Substance: TRASTUZUMAB
     Dosage: 1218 MILLIGRAM
     Route: 065
     Dates: start: 20151130
  129. TRASTUZUMAB [Suspect]
     Active Substance: TRASTUZUMAB
     Dosage: 609 MILLIGRAM (3 TIMES PER WEEK)
     Route: 065
     Dates: start: 20150930
  130. TRASTUZUMAB [Suspect]
     Active Substance: TRASTUZUMAB
     Dosage: 609 MILLIGRAM (2 TIMES PER WEEK)
     Route: 042
     Dates: start: 20150930
  131. TRASTUZUMAB [Suspect]
     Active Substance: TRASTUZUMAB
     Dosage: 420 MILLIGRAM (3 TIMES PER WEEK)
     Route: 065
  132. TRASTUZUMAB [Suspect]
     Active Substance: TRASTUZUMAB
     Dosage: 840 MILLIGRAM (3 TIMES PER WEEK)
     Route: 065
  133. TRASTUZUMAB [Suspect]
     Active Substance: TRASTUZUMAB
     Dosage: 840 MILLIGRAM (3 TIMES PER WEEK)
     Route: 065
  134. TRASTUZUMAB [Suspect]
     Active Substance: TRASTUZUMAB
     Dosage: 420 MILLIGRAM (3 TIMES PER WEEK)
     Route: 065
  135. XGEVA [Suspect]
     Active Substance: DENOSUMAB
     Indication: Metastases to bone
     Dosage: 120 MILLIGRAM (OTHER (EVERY 9 WEEKS))
     Route: 058
     Dates: start: 20150930
  136. XGEVA [Suspect]
     Active Substance: DENOSUMAB
     Indication: Gastrooesophageal reflux disease
     Dosage: 120 MILLIGRAM, QD
     Route: 058
  137. ZUCLOPENTHIXOL [Suspect]
     Active Substance: ZUCLOPENTHIXOL
     Indication: Product used for unknown indication
     Dosage: 400 MILLIGRAM
     Route: 048
     Dates: start: 20040217, end: 20040601
  138. ZUCLOPENTHIXOL [Suspect]
     Active Substance: ZUCLOPENTHIXOL
     Dosage: 400 MILLIGRAM (CYCLICAL, (400 MG, CYCLIC (400 MG, BIWEEKLY))
     Route: 048
     Dates: start: 20040217, end: 20040601
  139. ZUCLOPENTHIXOL [Suspect]
     Active Substance: ZUCLOPENTHIXOL
     Dosage: 300 MILLIGRAM, ONCE WEEKLY
     Route: 048
     Dates: start: 20091018
  140. ZUCLOPENTHIXOL [Suspect]
     Active Substance: ZUCLOPENTHIXOL
     Dosage: 400 MILLIGRAM, ONCE WEEKLY
     Route: 048
     Dates: start: 20040217, end: 20040601
  141. CHLORPHENIRAMINE MALEATE [Concomitant]
     Active Substance: CHLORPHENIRAMINE MALEATE
     Indication: Product used for unknown indication
     Dosage: 10 MILLIGRAM, ONCE WEEKLY
     Route: 050
     Dates: start: 20151111
  142. CHOLECALCIFEROL [Concomitant]
     Active Substance: CHOLECALCIFEROL
     Indication: Product used for unknown indication
     Dosage: 2 DOSAGE FORM, QD
     Route: 050
  143. CALCIUM\CHOLECALCIFEROL [Concomitant]
     Active Substance: CALCIUM\CHOLECALCIFEROL
     Indication: Product used for unknown indication
     Dosage: 2 DOSAGE FORM, QD
     Route: 065
     Dates: start: 20091018
  144. AMOXICILLIN\CLAVULANATE POTASSIUM [Concomitant]
     Active Substance: AMOXICILLIN\CLAVULANATE POTASSIUM
     Indication: Febrile neutropenia
     Dosage: 625 MILLIGRAM (120 MG OTHER EVERY 9 WEEKS)
     Route: 050
     Dates: start: 20151111
  145. AMOXICILLIN\CLAVULANATE POTASSIUM [Concomitant]
     Active Substance: AMOXICILLIN\CLAVULANATE POTASSIUM
     Dosage: 2500 MILLIGRAM, QD
     Route: 050
     Dates: start: 20151122, end: 20151125
  146. AMOXICILLIN\CLAVULANATE POTASSIUM [Concomitant]
     Active Substance: AMOXICILLIN\CLAVULANATE POTASSIUM
     Dosage: 2500 MILLIGRAM, QD
     Route: 050
     Dates: start: 20151122
  147. AMOXICILLIN\CLAVULANATE POTASSIUM [Concomitant]
     Active Substance: AMOXICILLIN\CLAVULANATE POTASSIUM
     Dosage: 625 MILLIGRAM (EVERY 0.33 DAYS, CUMULATIVE DOSE: 16875)
     Route: 050
     Dates: start: 20151122, end: 20151125
  148. DULOXETINE [Concomitant]
     Active Substance: DULOXETINE
     Indication: Product used for unknown indication
     Dosage: UNK
     Route: 065
  149. GENTAMICIN [Concomitant]
     Active Substance: GENTAMICIN
     Indication: Febrile neutropenia
     Dosage: UNK
     Route: 050
     Dates: start: 20151121
  150. LEVOFLOXACIN [Concomitant]
     Active Substance: LEVOFLOXACIN
     Indication: Febrile neutropenia
     Dosage: 500 MILLIGRAM, QD (DAILY)
     Route: 050
     Dates: start: 20151125
  151. MIRTAZAPINE [Concomitant]
     Active Substance: MIRTAZAPINE
     Indication: Product used for unknown indication
     Dosage: 15 MILLIGRAM, QD (DAILY)
     Route: 065
  152. MORPHINE [Concomitant]
     Active Substance: MORPHINE
     Indication: Pain
     Dosage: 60 MILLIGRAM, QD (30 MG BID)
     Route: 050
  153. MORPHINE [Concomitant]
     Active Substance: MORPHINE
     Dosage: 15 MILLIGRAM, QD (DAILY)
     Route: 065
  154. MORPHINE [Concomitant]
     Active Substance: MORPHINE
     Dosage: 30 MILLIGRAM, BID
     Route: 050
  155. MORPHINE SULFATE [Concomitant]
     Active Substance: MORPHINE SULFATE
     Indication: Product used for unknown indication
     Dosage: 10 MILLIGRAM
     Route: 065
  156. ACETAMINOPHEN [Concomitant]
     Active Substance: ACETAMINOPHEN
     Indication: Pain
     Dosage: 500 MILLIGRAM (DOSAGE FORM 245)
     Route: 050
     Dates: start: 20150127
  157. ACETAMINOPHEN [Concomitant]
     Active Substance: ACETAMINOPHEN
     Dosage: 15 MILLIGRAM, QD
     Route: 065
  158. PREGABALIN [Concomitant]
     Active Substance: PREGABALIN
     Indication: Product used for unknown indication
     Dosage: 75 MILLIGRAM, BID
     Route: 050
  159. PREGABALIN [Concomitant]
     Active Substance: PREGABALIN
     Dosage: 150 MILLIGRAM, BID (300, QD)
     Route: 050
  160. PREGABALIN [Concomitant]
     Active Substance: PREGABALIN
     Dosage: 150 MILLIGRAM, QD (75 MG BID)
     Route: 050
  161. RANITIDINE [Concomitant]
     Active Substance: RANITIDINE
     Indication: Gastrooesophageal reflux disease
     Dosage: 50 MILLIGRAM, ONCE WEEKLY
     Route: 058
  162. RANITIDINE [Concomitant]
     Active Substance: RANITIDINE
     Dosage: 150 MILLIGRAM, ONCE WEEKLY (50 MG QWK)
     Route: 050
  163. RANITIDINE [Concomitant]
     Active Substance: RANITIDINE
     Dosage: 50 MILLIGRAM, ONCE WEEKLY
     Route: 050
     Dates: start: 20151111
  164. RANITIDINE [Concomitant]
     Active Substance: RANITIDINE
     Dosage: 75 MILLIGRAM, ONCE WEEKLY
     Route: 050
  165. TAZOBACTAM SODIUM [Concomitant]
     Active Substance: TAZOBACTAM SODIUM
     Indication: Febrile neutropenia
     Dosage: UNK
     Route: 065
     Dates: start: 20151121
  166. PIPERACILLIN SODIUM\TAZOBACTAM SODIUM [Concomitant]
     Active Substance: PIPERACILLIN SODIUM\TAZOBACTAM SODIUM
     Indication: Febrile neutropenia
     Dosage: UNK
     Route: 065
     Dates: start: 20151121

REACTIONS (31)
  - Neutrophil count increased [Fatal]
  - Platelet count decreased [Fatal]
  - Disease progression [Fatal]
  - Extrapyramidal disorder [Fatal]
  - Leukopenia [Fatal]
  - Lymphocyte count decreased [Fatal]
  - Neutropenia [Fatal]
  - Seizure [Fatal]
  - Lymphocyte count abnormal [Fatal]
  - Affective disorder [Fatal]
  - Hallucination, auditory [Fatal]
  - Psychotic disorder [Fatal]
  - Schizophrenia [Fatal]
  - Fatigue [Fatal]
  - Delusion of grandeur [Fatal]
  - Diarrhoea [Fatal]
  - Thrombocytopenia [Fatal]
  - Leukocytosis [Fatal]
  - COVID-19 [Fatal]
  - Neutrophil count decreased [Fatal]
  - Mucosal inflammation [Fatal]
  - Dyspepsia [Fatal]
  - Nausea [Fatal]
  - Alopecia [Fatal]
  - Neuropathy peripheral [Fatal]
  - Cellulitis [Fatal]
  - Rhinalgia [Fatal]
  - Overdose [Fatal]
  - Incorrect dose administered [Fatal]
  - Intentional product misuse [Fatal]
  - Off label use [Fatal]

NARRATIVE: CASE EVENT DATE: 20151101
